FAERS Safety Report 6317024-X (Version None)
Quarter: 2009Q3

REPORT INFORMATION
  Report Type: 
  Country: None (occurrence: None)
  Receive Date: 20090820
  Receipt Date: 20090814
  Transmission Date: 20100115
  Serious: Yes (Disabling, Other)
  Sender: FDA-Public Use
  Company Number: US-SANOFI-SYNTHELABO-A03200903586

PATIENT
  Age: 48 Year
  Sex: Male

DRUGS (11)
  1. PLAVIX [Suspect]
     Indication: CORONARY ARTERY BYPASS
     Route: 048
     Dates: start: 20080301, end: 20090301
  2. PLAVIX [Suspect]
     Route: 048
     Dates: start: 20090301, end: 20090101
  3. PLAVIX [Suspect]
     Route: 048
     Dates: start: 20090101, end: 20090313
  4. ASPIRIN [Suspect]
     Indication: CORONARY ARTERY BYPASS
     Route: 048
     Dates: start: 20080301, end: 20090301
  5. ASPIRIN [Suspect]
     Route: 048
     Dates: start: 20090301
  6. LISINOPRIL [Concomitant]
     Dosage: UNK
     Route: 065
  7. RANITIDINE [Concomitant]
     Dosage: OVER THE COUNTER
     Route: 065
  8. OMEPRAZOLE [Concomitant]
     Dosage: OVER THE COUNTER
     Route: 065
  9. METOPROLOL [Concomitant]
     Dosage: UNK
     Route: 065
  10. ZETIA [Concomitant]
     Dosage: UNK
     Route: 065
  11. TYLENOL ES [Concomitant]
     Dosage: A LOT UNK
     Route: 065

REACTIONS (6)
  - ARTHRALGIA [None]
  - CORONARY ARTERY THROMBOSIS [None]
  - DRUG INEFFECTIVE [None]
  - MYOCARDIAL INFARCTION [None]
  - OVERDOSE [None]
  - RHEUMATOID ARTHRITIS [None]
